FAERS Safety Report 25421135 (Version 2)
Quarter: 2025Q2

REPORT INFORMATION
  Report Type: Spontaneous
  Country: CN (occurrence: CN)
  Receive Date: 20250611
  Receipt Date: 20250619
  Transmission Date: 20250717
  Serious: Yes (Other)
  Sender: BAUSCH AND LOMB
  Company Number: CN-BAUSCH-BL-2025-007118

PATIENT
  Age: 86 Year
  Sex: Female

DRUGS (5)
  1. DICLOFENAC [Interacting]
     Active Substance: DICLOFENAC
     Indication: Pain management
     Route: 065
  2. GLIPIZIDE [Interacting]
     Active Substance: GLIPIZIDE
     Indication: Type 2 diabetes mellitus
     Dosage: SUSTAINED RELEASE TABLETS
     Route: 065
  3. METFORMIN [Concomitant]
     Active Substance: METFORMIN HYDROCHLORIDE
     Indication: Type 2 diabetes mellitus
     Route: 065
  4. RIVAROXABAN [Concomitant]
     Active Substance: RIVAROXABAN
     Indication: Drug therapy
  5. DEXTROSE [Concomitant]
     Active Substance: DEXTROSE MONOHYDRATE
     Indication: Product used for unknown indication
     Route: 042

REACTIONS (2)
  - Hypoglycaemic coma [Unknown]
  - Drug interaction [Unknown]
